FAERS Safety Report 8161186-9 (Version None)
Quarter: 2012Q1

REPORT INFORMATION
  Report Type: 
  Country: None (occurrence: None)
  Receive Date: 20120103
  Receipt Date: 20111118
  Transmission Date: 20120608
  Serious: No
  Sender: FDA-Public Use
  Company Number: AE-2011-003764

PATIENT
  Age: 58 Year
  Sex: Male
  Weight: 58.9676 kg

DRUGS (3)
  1. INTERFERON [Concomitant]
  2. INCIVEK [Suspect]
     Dosage: 2250 MG (750 MG, Q 7-9 HOURS), ORAL
     Route: 048
     Dates: start: 20111104
  3. RIBAVIRIN [Concomitant]

REACTIONS (4)
  - HAEMORRHOIDS [None]
  - NAUSEA [None]
  - ABDOMINAL DISCOMFORT [None]
  - INFLUENZA LIKE ILLNESS [None]
